FAERS Safety Report 7832224-5 (Version None)
Quarter: 2011Q4

REPORT INFORMATION
  Report Type: 
  Country: None (occurrence: None)
  Receive Date: 20111022
  Receipt Date: 20111019
  Transmission Date: 20120403
  Serious: Yes (Hospitalization)
  Sender: FDA-Public Use
  Company Number: IT-BAYER-2011-101527

PATIENT
  Age: 78 Year
  Sex: Male

DRUGS (7)
  1. CIPROFLOXACIN [Concomitant]
     Dosage: DAILY DOSE 500 MG
     Route: 048
  2. BISOPROLOL [Concomitant]
     Dosage: DAILY DOSE 3.75 MG
     Route: 048
  3. GLIBOMET [Concomitant]
  4. ASPIRIN [Suspect]
     Dosage: 100 MG, QD
     Route: 048
     Dates: start: 20100803, end: 20110802
  5. ATORVASTATIN CALCIUM [Concomitant]
     Dosage: DAILY DOSE 20 MG
     Route: 048
  6. FUROSEMIDE [Concomitant]
     Dosage: DAILY DOSE 25 MG
     Route: 048
  7. RAMIPRIL [Concomitant]
     Dosage: DAILY DOSE 2.5 MG
     Route: 048

REACTIONS (1)
  - HAEMATURIA [None]
